FAERS Safety Report 21885291 (Version 6)
Quarter: 2024Q4

REPORT INFORMATION
  Report Type: Spontaneous
  Country: US (occurrence: US)
  Receive Date: 20230119
  Receipt Date: 20241231
  Transmission Date: 20250114
  Serious: Yes (Other)
  Sender: SANOFI AVENTIS
  Company Number: US-SA-SAC20230117001242

PATIENT
  Age: 13 Year
  Sex: Male

DRUGS (7)
  1. ELOCTATE [Suspect]
     Active Substance: EFMOROCTOCOG ALFA
     Dosage: 3095 IU, PRN
     Route: 042
  2. ELOCTATE [Suspect]
     Active Substance: EFMOROCTOCOG ALFA
     Dosage: 3095 IU, PRN
     Route: 042
  3. ELOCTATE [Suspect]
     Active Substance: EFMOROCTOCOG ALFA
     Dosage: 3085 IU (+/-10%)
     Route: 042
  4. ELOCTATE [Suspect]
     Active Substance: EFMOROCTOCOG ALFA
     Dosage: 3085 IU (+/-10%)
     Route: 042
  5. ELOCTATE [Suspect]
     Active Substance: EFMOROCTOCOG ALFA
     Dosage: 3500 U
     Route: 042
  6. ELOCTATE [Suspect]
     Active Substance: EFMOROCTOCOG ALFA
     Dosage: 3500 U
     Route: 042
  7. HEMLIBRA [Concomitant]
     Active Substance: EMICIZUMAB-KXWH
     Dosage: UNK

REACTIONS (5)
  - Haemorrhage [Recovered/Resolved]
  - Pain in extremity [Unknown]
  - Pain [Unknown]
  - Skin laceration [Unknown]
  - Traumatic haemorrhage [Unknown]

NARRATIVE: CASE EVENT DATE: 20230111
